FAERS Safety Report 15356139 (Version 2)
Quarter: 2018Q3

REPORT INFORMATION
  Report Type: Spontaneous
  Country: US (occurrence: US)
  Receive Date: 20180906
  Receipt Date: 20180928
  Transmission Date: 20181010
  Serious: No
  Sender: FDA-Public Use
  Company Number: US-PFIZER INC-2018358937

PATIENT
  Age: 59 Year
  Sex: Female
  Weight: 108.86 kg

DRUGS (2)
  1. GABAPENTIN. [Suspect]
     Active Substance: GABAPENTIN
     Indication: RADICULAR PAIN
     Dosage: 400 MG CAPSULE (500 MG AT BEDTIME)
  2. GABAPENTIN. [Suspect]
     Active Substance: GABAPENTIN
     Dosage: 2000 MG, 1X/DAY AT NIGHT
     Route: 048

REACTIONS (6)
  - Fatigue [Unknown]
  - Intentional product use issue [Unknown]
  - Tremor [Unknown]
  - Amnesia [Unknown]
  - Overdose [Unknown]
  - Product use issue [Unknown]

NARRATIVE: CASE EVENT DATE: 2018
